FAERS Safety Report 8353652-8 (Version None)
Quarter: 2012Q2

REPORT INFORMATION
  Report Type: 
  Country: None (occurrence: None)
  Receive Date: 20120509
  Receipt Date: 20120425
  Transmission Date: 20120825
  Serious: Yes (Hospitalization)
  Sender: FDA-Public Use
  Company Number: 2012ST000421

PATIENT
  Age: 57 Year
  Sex: Male

DRUGS (1)
  1. MATULANE [Suspect]
     Indication: RENAL CANCER
     Dosage: 200 MG;QD;PO
     Route: 048
     Dates: start: 20110928

REACTIONS (1)
  - UNEVALUABLE EVENT [None]
